FAERS Safety Report 24537722 (Version 1)
Quarter: 2024Q4

REPORT INFORMATION
  Report Type: Spontaneous
  Country: NL (occurrence: NL)
  Receive Date: 20241023
  Receipt Date: 20241023
  Transmission Date: 20250115
  Serious: Yes (Other)
  Sender: AUROBINDO
  Company Number: NL-ABBVIE-5783033

PATIENT
  Sex: Male

DRUGS (18)
  1. PRAMIPEXOLE [Suspect]
     Active Substance: PRAMIPEXOLE\PRAMIPEXOLE DIHYDROCHLORIDE
     Indication: Product used for unknown indication
     Dosage: UNK
     Route: 065
     Dates: end: 202409
  2. PRAMIPEXOLE [Suspect]
     Active Substance: PRAMIPEXOLE\PRAMIPEXOLE DIHYDROCHLORIDE
     Dosage: STOP DATE TEXT: BEING PHASED OUT
     Route: 065
  3. CARBIDOPA\LEVODOPA [Suspect]
     Active Substance: CARBIDOPA\LEVODOPA
     Indication: Parkinson^s disease
     Dosage: UNK
     Dates: start: 20221129
  4. CARBIDOPA\LEVODOPA [Suspect]
     Active Substance: CARBIDOPA\LEVODOPA
     Dosage: CD: 3.1 ML/H,DURATION TEXT: REMAINS AT 16 HOURS
     Dates: start: 20231122, end: 20231206
  5. CARBIDOPA\LEVODOPA [Suspect]
     Active Substance: CARBIDOPA\LEVODOPA
     Dosage: CD: 2.8 ML/H
     Dates: start: 20240820, end: 20240824
  6. CARBIDOPA\LEVODOPA [Suspect]
     Active Substance: CARBIDOPA\LEVODOPA
     Dosage: MD: 7.0 ML, CD: 2.9 ML/H, ED: 0.0 MLDURATION TEXT: REMAINS AT 16 HOURS
     Dates: start: 20231220, end: 20240329
  7. CARBIDOPA\LEVODOPA [Suspect]
     Active Substance: CARBIDOPA\LEVODOPA
     Dosage: MD: 6.0 ML, CD: 2.5 ML/H, ED: 0.0 ML, DURATION TEXT: REMAINS AT 16 HOURS
     Dates: start: 20240802, end: 20240820
  8. CARBIDOPA\LEVODOPA [Suspect]
     Active Substance: CARBIDOPA\LEVODOPA
     Dosage: MD: 8.0 ML, CD: 2.9 ML/H, ED: 0.0 ML,DURATION TEXT: REMAINS AT 16 HOURS
     Dates: start: 20231206, end: 20231220
  9. CARBIDOPA\LEVODOPA [Suspect]
     Active Substance: CARBIDOPA\LEVODOPA
     Dosage: MD: 7.0 ML, CD: 2.9 ML/H, ED: 0.0 ML, MD: 7.0 ML, CD: 2.9 ML/H, ED: 0.0 MLDURATION TEXT: REMAINS AT
     Dates: start: 20240329, end: 20240510
  10. CARBIDOPA\LEVODOPA [Suspect]
     Active Substance: CARBIDOPA\LEVODOPA
     Dosage: MD: 4.0 ML, CD: 2.5 ML/H, ED: 0.0 ML
     Dates: start: 20240924
  11. CARBIDOPA\LEVODOPA [Suspect]
     Active Substance: CARBIDOPA\LEVODOPA
     Dosage: MD: 6.5 ML, CD: 2.7 ML/H, ED: 0.0 ML, MD: 6.5 ML, CD: 2.7 ML/H, ED: 0.0 MLDURATION TEXT: REMAINS AT
     Dates: start: 20240510, end: 20240517
  12. CARBIDOPA\LEVODOPA [Suspect]
     Active Substance: CARBIDOPA\LEVODOPA
     Dosage: MD: 6.0 ML, CD: 2.5 ML/H, ED: 0.0 ML, MD: 6.0 ML, CD: 2.5 ML/H, ED: 0.0 ML, DURATION TEXT: REMAINS A
     Dates: start: 20240517, end: 20240701
  13. CARBIDOPA\LEVODOPA [Suspect]
     Active Substance: CARBIDOPA\LEVODOPA
     Dosage: MD: 6.0 ML, CD: 2.5 ML/H, ED: 0.0 MLDURATION TEXT: REMAINS AT 16 HOURS
     Dates: start: 20240701, end: 20240802
  14. MIRTAZAPINE [Concomitant]
     Active Substance: MIRTAZAPINE
     Indication: Sleep disorder
     Dosage: UNK
     Route: 065
  15. QUETIAPINE [Concomitant]
     Active Substance: QUETIAPINE
     Indication: Product used for unknown indication
     Dosage: UNK
     Route: 065
  16. CARBOHYDRATES\FATTY ACIDS\MINERALS\PROTEIN\VITAMINS [Concomitant]
     Active Substance: CARBOHYDRATES\FATTY ACIDS\MINERALS\PROTEIN\VITAMINS
     Indication: Weight abnormal
     Dosage: UNK
     Route: 065
  17. POLYETHYLENE GLYCOLS [Concomitant]
     Active Substance: POLYETHYLENE GLYCOLS
     Indication: Abnormal faeces
     Dosage: UNK
     Route: 065
  18. POLYETHYLENE GLYCOLS [Concomitant]
     Active Substance: POLYETHYLENE GLYCOLS
     Indication: Defaecation disorder

REACTIONS (22)
  - Hallucination [Not Recovered/Not Resolved]
  - Choking [Recovered/Resolved]
  - Sexually inappropriate behaviour [Not Recovered/Not Resolved]
  - Speech disorder [Not Recovered/Not Resolved]
  - Patient elopement [Not Recovered/Not Resolved]
  - Cognitive disorder [Not Recovered/Not Resolved]
  - Hyperkinesia [Not Recovered/Not Resolved]
  - Dyskinesia [Not Recovered/Not Resolved]
  - Restlessness [Not Recovered/Not Resolved]
  - Communication disorder [Not Recovered/Not Resolved]
  - Somnolence [Not Recovered/Not Resolved]
  - Sitting disability [Not Recovered/Not Resolved]
  - Fall [Not Recovered/Not Resolved]
  - Abnormal behaviour [Not Recovered/Not Resolved]
  - Delusion [Not Recovered/Not Resolved]
  - Echopraxia [Not Recovered/Not Resolved]
  - Loss of personal independence in daily activities [Not Recovered/Not Resolved]
  - Impulsive behaviour [Recovered/Resolved]
  - Confusional state [Recovered/Resolved]
  - Unevaluable event [Not Recovered/Not Resolved]
  - Device issue [Not Recovered/Not Resolved]
  - Off label use [Not Recovered/Not Resolved]

NARRATIVE: CASE EVENT DATE: 20240730
